FAERS Safety Report 8425747 (Version 3)
Quarter: 2013Q1

REPORT INFORMATION
  Report Type: Spontaneous
  Country: US (occurrence: US)
  Receive Date: 20120224
  Receipt Date: 20130103
  Transmission Date: 20140127
  Serious: No
  Sender: FDA-Public Use
  Company Number: US-ASTRAZENECA-2011SE67778

PATIENT
  Age: 66 Year
  Sex: Female

DRUGS (4)
  1. NEXIUM [Suspect]
     Route: 048
  2. NEXIUM [Suspect]
     Dosage: GENERIC
     Route: 048
  3. VIMOVO [Suspect]
     Route: 048
  4. CELEBREX [Suspect]
     Route: 065

REACTIONS (7)
  - Gastrooesophageal reflux disease [Unknown]
  - Abdominal distension [Unknown]
  - Arthritis [Unknown]
  - Arthralgia [Unknown]
  - Abdominal pain upper [Unknown]
  - Constipation [Unknown]
  - Drug dose omission [Unknown]
